FAERS Safety Report 5711369-X (Version None)
Quarter: 2008Q2

REPORT INFORMATION
  Report Type: 
  Country: None (occurrence: None)
  Receive Date: 20080421
  Receipt Date: 20080417
  Transmission Date: 20081010
  Serious: Yes (Hospitalization)
  Sender: FDA-Public Use
  Company Number: B0517354A

PATIENT
  Sex: Female

DRUGS (8)
  1. AVANDAMET [Suspect]
     Indication: DRUG USE FOR UNKNOWN INDICATION
     Route: 048
  2. MOVALIS [Concomitant]
     Route: 048
  3. EUTHYROX [Concomitant]
     Route: 048
  4. ENALAPRIL MALEATE [Concomitant]
     Route: 048
  5. THEOPHYLLINE [Concomitant]
     Route: 048
  6. SIRDALUD [Concomitant]
     Route: 048
  7. SPIRIVA [Concomitant]
  8. TEBOFORTAN [Concomitant]

REACTIONS (1)
  - ARRHYTHMIA [None]
